FAERS Safety Report 11641447 (Version 1)
Quarter: 2015Q4

REPORT INFORMATION
  Report Type: Spontaneous
  Country: US (occurrence: US)
  Receive Date: 20151019
  Receipt Date: 20151019
  Transmission Date: 20160304
  Serious: Yes (Other)
  Sender: FDA-Public Use
  Company Number: US-009507513-1510USA007348

PATIENT
  Sex: Female

DRUGS (1)
  1. JANUVIA [Suspect]
     Active Substance: SITAGLIPTIN PHOSPHATE
     Dosage: 100 MG, TWICE A DAY
     Route: 048

REACTIONS (4)
  - Haemorrhage [Unknown]
  - Gallbladder pain [Unknown]
  - Incorrect dose administered [Unknown]
  - Cholelithiasis [Unknown]
